FAERS Safety Report 6048295-5 (Version None)
Quarter: 2009Q1

REPORT INFORMATION
  Report Type: 
  Country: None (occurrence: None)
  Receive Date: 20090123
  Receipt Date: 20090112
  Transmission Date: 20090719
  Serious: Yes (Death, Hospitalization, Other)
  Sender: FDA-Public Use
  Company Number: US-ROCHE-608487

PATIENT
  Age: 43 Year
  Sex: Male

DRUGS (16)
  1. NAPROXEN [Suspect]
     Indication: DRUG USE FOR UNKNOWN INDICATION
     Dosage: OVERDOSE: ROUTE REPORTED AS INGESTION
     Route: 048
  2. NAPROXEN [Suspect]
     Route: 048
  3. AMITRIPTYLINE HCL [Suspect]
     Indication: DRUG USE FOR UNKNOWN INDICATION
     Dosage: OVERDOSE: ROUTE REPORTED AS INGESTION
     Route: 048
  4. AMITRIPTYLINE HCL [Suspect]
     Route: 048
  5. MORPHINE [Suspect]
     Indication: DRUG USE FOR UNKNOWN INDICATION
     Dosage: OVERDOSE: ROUTE REPORTED AS INGESTION
     Route: 048
  6. MORPHINE [Suspect]
     Route: 048
  7. LISINOPRIL [Suspect]
     Indication: DRUG USE FOR UNKNOWN INDICATION
     Dosage: OVERDOSE: ROUTE REPORTED AS INGESTION
     Route: 048
  8. LISINOPRIL [Suspect]
     Route: 048
  9. BACLOFEN [Suspect]
     Indication: DRUG USE FOR UNKNOWN INDICATION
     Dosage: OVERDOSE: ROUTE REPORTED AS INGESTION
     Route: 048
  10. BACLOFEN [Suspect]
     Route: 048
  11. GABAPENTIN [Suspect]
     Indication: DRUG USE FOR UNKNOWN INDICATION
     Dosage: OVERDOSE: ROUTE REPORTED AS INGESTION
     Route: 048
  12. GABAPENTIN [Suspect]
     Route: 048
  13. VENLAFAXINE [Suspect]
     Indication: DRUG USE FOR UNKNOWN INDICATION
     Dosage: OVERDOSE: ROUTE REPORTED AS INGESTION
     Route: 048
  14. VENLAFAXINE [Suspect]
     Route: 048
  15. ETHANOL [Suspect]
     Indication: DRUG USE FOR UNKNOWN INDICATION
     Dosage: OVERDOSE: ROUTE REPORTED AS INGESTION
     Route: 048
  16. ETHANOL [Suspect]
     Route: 048

REACTIONS (3)
  - CARDIAC ARREST [None]
  - COMPLETED SUICIDE [None]
  - RESPIRATORY ARREST [None]
